FAERS Safety Report 17675235 (Version 2)
Quarter: 2020Q2

REPORT INFORMATION
  Report Type: Spontaneous
  Country: EG (occurrence: EG)
  Receive Date: 20200416
  Receipt Date: 20200526
  Transmission Date: 20200714
  Serious: Yes (Disabling)
  Sender: FDA-Public Use
  Company Number: NVSC2020EG100567

PATIENT
  Age: 8 Decade
  Sex: Female

DRUGS (2)
  1. VIGAMOX [Suspect]
     Active Substance: MOXIFLOXACIN HYDROCHLORIDE
     Dosage: UNK
     Route: 047
  2. VIGAMOX [Suspect]
     Active Substance: MOXIFLOXACIN HYDROCHLORIDE
     Indication: PRODUCT USED FOR UNKNOWN INDICATION
     Dosage: 5 TIMES DAILY
     Route: 047

REACTIONS (8)
  - Persistent pupillary membrane [Not Recovered/Not Resolved]
  - Product colour issue [Unknown]
  - Endophthalmitis [Not Recovered/Not Resolved]
  - Corneal opacity [Not Recovered/Not Resolved]
  - Eye pain [Not Recovered/Not Resolved]
  - Blindness [Not Recovered/Not Resolved]
  - Suspected counterfeit product [Unknown]
  - Hypopyon [Not Recovered/Not Resolved]
